FAERS Safety Report 5276154-4 (Version None)
Quarter: 2007Q1

REPORT INFORMATION
  Report Type: 
  Country: None (occurrence: None)
  Receive Date: 20070326
  Receipt Date: 20070322
  Transmission Date: 20070707
  Serious: Yes (Disabling)
  Sender: FDA-Public Use
  Company Number: IT-BRISTOL-MYERS SQUIBB COMPANY-13722996

PATIENT
  Sex: Male

DRUGS (2)
  1. SUSTIVA [Suspect]
  2. TRUVADA [Suspect]

REACTIONS (2)
  - HYPOAESTHESIA [None]
  - PAIN IN EXTREMITY [None]
